FAERS Safety Report 5636669-3 (Version None)
Quarter: 2008Q1

REPORT INFORMATION
  Report Type: 
  Country: None (occurrence: None)
  Receive Date: 20080225
  Receipt Date: 20080214
  Transmission Date: 20080703
  Serious: Yes (Other)
  Sender: FDA-Public Use
  Company Number: US-ROCHE-547560

PATIENT
  Age: 39 Year
  Sex: Male

DRUGS (2)
  1. PEG-INTERFERON A-2A (RO 25-8310) [Suspect]
     Route: 065
     Dates: start: 20080104
  2. RIBAVIRIN (NON-ROCHE) [Suspect]
     Route: 065
     Dates: start: 20080104

REACTIONS (1)
  - LOSS OF CONSCIOUSNESS [None]
